FAERS Safety Report 22315995 (Version 2)
Quarter: 2023Q2

REPORT INFORMATION
  Report Type: Spontaneous
  Country: PH (occurrence: PH)
  Receive Date: 20230512
  Receipt Date: 20230621
  Transmission Date: 20230721
  Serious: Yes (Hospitalization, Other)
  Sender: FDA-Public Use
  Company Number: PH-BoehringerIngelheim-2023-BI-237139

PATIENT
  Age: 53 Year
  Sex: Male

DRUGS (2)
  1. GLYXAMBI [Suspect]
     Active Substance: EMPAGLIFLOZIN\LINAGLIPTIN
     Indication: Type 2 diabetes mellitus
     Dosage: FORM STRENGTH : 25/5
     Dates: start: 20230211, end: 20230512
  2. TWYNSTA [Suspect]
     Active Substance: AMLODIPINE BESYLATE\TELMISARTAN
     Indication: Hypertension
     Dosage: STRENGTH: 40/5
     Dates: start: 20230211

REACTIONS (3)
  - Diabetic foot infection [Unknown]
  - Euglycaemic diabetic ketoacidosis [Recovered/Resolved]
  - Sepsis [Unknown]

NARRATIVE: CASE EVENT DATE: 20230211
